FAERS Safety Report 5918475-5 (Version None)
Quarter: 2008Q4

REPORT INFORMATION
  Report Type: 
  Country: None (occurrence: None)
  Receive Date: 20081014
  Receipt Date: 20081014
  Transmission Date: 20090506
  Serious: Yes (Hospitalization)
  Sender: FDA-Public Use
  Company Number: None

PATIENT
  Age: 68 Year
  Sex: Female
  Weight: 73.1 kg

DRUGS (2)
  1. EXENATIDE 0.25 MG AMYLIN [Suspect]
     Indication: TYPE 2 DIABETES MELLITUS
     Dosage: 10 MCG BID 057
     Dates: start: 20080422, end: 20080917
  2. PLACEBO AMYLIN [Suspect]
     Dosage: 10 MCG BID 057

REACTIONS (2)
  - ABDOMINAL DISCOMFORT [None]
  - CHEST PAIN [None]
